FAERS Safety Report 9345803 (Version 2)
Quarter: 2013Q3

REPORT INFORMATION
  Report Type: Spontaneous
  Country: US (occurrence: US)
  Receive Date: 20130613
  Receipt Date: 20130724
  Transmission Date: 20140515
  Serious: Yes (Other)
  Sender: FDA-Public Use
  Company Number: US-UCBSA-082134

PATIENT
  Age: 70 Year
  Sex: Female
  Weight: 50.8 kg

DRUGS (18)
  1. CIMZIA [Suspect]
     Indication: CROHN^S DISEASE
     Dates: start: 20130305
  2. AVELOX [Suspect]
     Indication: PNEUMONIA
     Dosage: DOSE: 500 MG PACK
  3. FOLIC ACID [Concomitant]
  4. ENTOCORT [Concomitant]
     Indication: CROHN^S DISEASE
     Dates: end: 20130327
  5. VITAMIN K [Concomitant]
     Indication: HAEMORRHAGE
  6. MELATONIN [Concomitant]
     Indication: SLEEP DISORDER
     Dosage: ONCE AT BED TIME
  7. MIDODRINE [Concomitant]
     Dosage: 2 TABLETS
  8. RANITADINE [Concomitant]
     Indication: CROHN^S DISEASE
  9. GABAPENTIN [Concomitant]
     Indication: GASTROINTESTINAL PAIN
  10. POTASSIUM SUPPLEMENT [Concomitant]
  11. NORTRIPTYLINE [Concomitant]
     Dosage: AT BED TIME
  12. MAG-OX [Concomitant]
  13. CITALOPRAM [Concomitant]
  14. ALENDRONATE [Concomitant]
  15. VITAMIN B12 [Concomitant]
  16. LORATADINE [Concomitant]
     Indication: CROHN^S DISEASE
  17. DICYCLOMINE [Concomitant]
  18. MULTIVITAMIN [Concomitant]
     Dosage: UNKNOWN

REACTIONS (14)
  - Atypical pneumonia [Recovered/Resolved]
  - Pulmonary mass [Unknown]
  - Liver disorder [Unknown]
  - Paraesthesia [Recovered/Resolved]
  - Muscle twitching [Recovered/Resolved]
  - Feeling hot [Recovered/Resolved]
  - Diarrhoea [Not Recovered/Not Resolved]
  - Haemorrhage [Not Recovered/Not Resolved]
  - Weight decreased [Not Recovered/Not Resolved]
  - Haematochezia [Unknown]
  - Frequent bowel movements [Unknown]
  - Chapped lips [Recovered/Resolved]
  - Blister [Recovered/Resolved]
  - Adverse drug reaction [Unknown]
